FAERS Safety Report 8300314-9 (Version None)
Quarter: 2012Q2

REPORT INFORMATION
  Report Type: 
  Country: None (occurrence: None)
  Receive Date: 20120420
  Receipt Date: 20120413
  Transmission Date: 20120825
  Serious: Yes (Hospitalization, Other)
  Sender: FDA-Public Use
  Company Number: US-BAYER-2011-122112

PATIENT
  Age: 45 Year
  Sex: Female
  Weight: 92.971 kg

DRUGS (24)
  1. PRILOSEC [Concomitant]
     Indication: GASTROOESOPHAGEAL REFLUX DISEASE
     Dosage: 1 PER DAY
     Route: 048
     Dates: start: 20080101
  2. IBUPROFEN [Concomitant]
     Dosage: 200-400 MG AS NEEDED
     Route: 048
  3. MELATONIN [Concomitant]
     Dosage: 3 MG, HS
     Route: 048
  4. DROSPIRENONE AND ETHINYL ESTRADIOL [Suspect]
     Indication: PREMENSTRUAL SYNDROME
     Dosage: UNK
     Dates: start: 20090101, end: 20100101
  5. DROSPIRENONE AND ETHINYL ESTRADIOL [Suspect]
     Indication: HORMONE LEVEL ABNORMAL
  6. BEYAZ [Suspect]
     Indication: PREMENSTRUAL SYNDROME
     Dosage: UNK
     Dates: start: 20110501
  7. DROSPIRENONE AND ETHINYL ESTRADIOL [Concomitant]
     Indication: PREMENSTRUAL SYNDROME
     Dosage: UNK
     Dates: start: 20101101, end: 20110501
  8. B COMPLEX [B3,B6,B2,B1 HCL] [Concomitant]
     Indication: SUPPLEMENTATION THERAPY
     Dosage: 1 TAB DAILY
     Route: 048
     Dates: start: 20070101
  9. COLECALCIFEROL [Concomitant]
     Dosage: 1000 U, QD
     Route: 048
  10. FLUTICASONE FUROATE [Concomitant]
     Dosage: 16 G, UNK
     Route: 045
     Dates: start: 20110304
  11. MAGNESIUM [Concomitant]
     Indication: SUPPLEMENTATION THERAPY
     Dosage: 2 PER DAY
     Route: 048
     Dates: start: 20070101
  12. ANTI-INFLAMMATORY [Concomitant]
     Indication: SUPPLEMENTATION THERAPY
     Dosage: 2 PER DAY
     Dates: start: 20070101
  13. MULTI-VITAMIN [Concomitant]
     Indication: SUPPLEMENTATION THERAPY
     Dosage: 1 EACH DAILY
     Route: 048
     Dates: start: 20070101
  14. CALCIUM CARBONATE [Concomitant]
     Indication: SUPPLEMENTATION THERAPY
     Dosage: 2 PER DAY
     Route: 048
     Dates: start: 20070101
  15. BEYAZ [Suspect]
     Indication: HORMONE LEVEL ABNORMAL
  16. OMEPRAZOLE [Concomitant]
     Indication: GASTROOESOPHAGEAL REFLUX DISEASE
     Dosage: 1 PER DAY
     Route: 048
     Dates: start: 20080101
  17. GARLIQUE [Concomitant]
     Indication: SUPPLEMENTATION THERAPY
     Dosage: 2 PER DAY
     Route: 048
     Dates: start: 20070101
  18. METRONIDAZOLE [Concomitant]
     Dosage: 70 G, UNK
     Route: 067
     Dates: start: 20110408
  19. DROSPIRENONE AND ETHINYL ESTRADIOL [Concomitant]
     Indication: HORMONE LEVEL ABNORMAL
  20. MAGNESIUM OXIDE [Concomitant]
     Dosage: 400 MG, QD
     Route: 048
  21. CALCIUM CARBONATE/VITAMIN D3 [Concomitant]
     Dosage: 600 1 EACH DAILY
     Route: 048
  22. WELLBUTRIN [Concomitant]
     Indication: DEPRESSION
     Dosage: 150 MG, QD
     Route: 048
     Dates: start: 20050101
  23. FLUCONAZOLE [Concomitant]
     Dosage: 150 MG, UNK
     Dates: start: 20110321
  24. OMEPRAZOLE [Concomitant]
     Dosage: 20 MG, QD
     Route: 048

REACTIONS (7)
  - PAIN [None]
  - ANXIETY [None]
  - EMOTIONAL DISTRESS [None]
  - CHOLELITHIASIS [None]
  - GENERAL PHYSICAL HEALTH DETERIORATION [None]
  - ANHEDONIA [None]
  - CHOLECYSTITIS [None]
